FAERS Safety Report 20724730 (Version 1)
Quarter: 2022Q2

REPORT INFORMATION
  Report Type: Spontaneous
  Country: US (occurrence: None)
  Receive Date: 20220418
  Receipt Date: 20220418
  Transmission Date: 20220721
  Serious: Yes (Hospitalization)
  Sender: FDA-Public Use
  Company Number: None

PATIENT
  Age: 74 Year
  Sex: Female

DRUGS (1)
  1. CAPECITABINE [Suspect]
     Active Substance: CAPECITABINE
     Dosage: FREQUENCY : TWICE A DAY;?
     Route: 048
     Dates: start: 202203, end: 20220408

REACTIONS (6)
  - Weight decreased [None]
  - Laboratory test abnormal [None]
  - Off label use [None]
  - Fungal infection [None]
  - Off label use [None]
  - Obstruction [None]

NARRATIVE: CASE EVENT DATE: 20220408
